FAERS Safety Report 7498731-2 (Version None)
Quarter: 2011Q2

REPORT INFORMATION
  Report Type: 
  Country: None (occurrence: None)
  Receive Date: 20110524
  Receipt Date: 20110511
  Transmission Date: 20111010
  Serious: Yes (Hospitalization, Other)
  Sender: FDA-Public Use
  Company Number: BR-ELI_LILLY_AND_COMPANY-BR201105003537

PATIENT
  Sex: Female
  Weight: 58 kg

DRUGS (4)
  1. CYMBALTA [Suspect]
     Indication: DEPRESSION
     Dosage: 30 MG, EACH MORNING
     Route: 048
     Dates: start: 20110501, end: 20110501
  2. PURAN T4 [Concomitant]
     Indication: THYROID DISORDER
     Dosage: 25 MG, QD
     Route: 048
  3. OMEPRAZOLE [Concomitant]
     Indication: PROPHYLAXIS
     Dosage: 20 MG, QD
     Route: 048
  4. LOSARTAN [Concomitant]
     Indication: HYPERTENSION
     Dosage: 50 MG, QD
     Route: 048

REACTIONS (7)
  - VISUAL IMPAIRMENT [None]
  - VOMITING [None]
  - FEELING OF BODY TEMPERATURE CHANGE [None]
  - MALAISE [None]
  - SYNCOPE [None]
  - INTRAOCULAR PRESSURE INCREASED [None]
  - FEELING ABNORMAL [None]
